FAERS Safety Report 6647069-1 (Version None)
Quarter: 2010Q1

REPORT INFORMATION
  Report Type: 
  Country: None (occurrence: None)
  Receive Date: 20100323
  Receipt Date: 20100310
  Transmission Date: 20100710
  Serious: Yes (Other)
  Sender: FDA-Public Use
  Company Number: PHBS2008NO00688

PATIENT
  Sex: Female

DRUGS (6)
  1. OXCARBAZEPINE [Suspect]
     Indication: CONVULSION
     Dosage: 1200 MG/D
     Route: 065
  2. OXCARBAZEPINE [Suspect]
     Dosage: 2400 MG/D
     Route: 065
  3. LEVETIRACETAM [Suspect]
     Indication: CONVULSION
     Dosage: 500 MG/D
     Route: 065
  4. LEVETIRACETAM [Suspect]
     Dosage: 1000 MG/D
     Route: 065
  5. LEVETIRACETAM [Suspect]
     Dosage: 500 MG/D
     Route: 065
  6. PREGABALIN [Suspect]
     Indication: CONVULSION
     Dosage: 450 MG/D
     Route: 065

REACTIONS (4)
  - COMPLEX PARTIAL SEIZURES [None]
  - CONVULSION [None]
  - DRUG EXPOSURE DURING PREGNANCY [None]
  - GRAND MAL CONVULSION [None]
